FAERS Safety Report 8193565-8 (Version None)
Quarter: 2012Q1

REPORT INFORMATION
  Report Type: 
  Country: None (occurrence: None)
  Receive Date: 20120308
  Receipt Date: 20120222
  Transmission Date: 20120608
  Serious: Yes (Disabling, Other)
  Sender: FDA-Public Use
  Company Number: US-ROCHE-1045330

PATIENT
  Sex: Male

DRUGS (1)
  1. KLONOPIN [Suspect]
     Indication: TORTICOLLIS
     Route: 048

REACTIONS (21)
  - PAIN [None]
  - ILL-DEFINED DISORDER [None]
  - DECREASED APPETITE [None]
  - EATING DISORDER [None]
  - WITHDRAWAL SYNDROME [None]
  - DEPENDENCE [None]
  - DYSPEPSIA [None]
  - ABDOMINAL PAIN UPPER [None]
  - ERUCTATION [None]
  - VOMITING [None]
  - DEPRESSION [None]
  - WHEELCHAIR USER [None]
  - MUSCULAR WEAKNESS [None]
  - IMPAIRED WORK ABILITY [None]
  - QUALITY OF LIFE DECREASED [None]
  - DYSPNOEA [None]
  - SUICIDAL IDEATION [None]
  - VISION BLURRED [None]
  - HEART RATE INCREASED [None]
  - WEIGHT DECREASED [None]
  - RETCHING [None]
